FAERS Safety Report 14068362 (Version 1)
Quarter: 2017Q4

REPORT INFORMATION
  Report Type: Spontaneous
  Country: US (occurrence: US)
  Receive Date: 20171010
  Receipt Date: 20171010
  Transmission Date: 20180321
  Serious: No
  Sender: FDA-Public Use
  Company Number: US-SOMERSET-2017-US-000009

PATIENT
  Age: 52 Year
  Sex: Female

DRUGS (3)
  1. CYANOCOBALAMIN INJECTION - 1ML [Suspect]
     Active Substance: CYANOCOBALAMIN
  2. BLOOD PRESSURE MEDICATION [Concomitant]
     Active Substance: UNSPECIFIED INGREDIENT
     Route: 048
  3. PROTON PUMP INHIBITOR [Concomitant]
     Active Substance: UNSPECIFIED INGREDIENT
     Route: 048

REACTIONS (1)
  - Rash generalised [None]
